FAERS Safety Report 16146074 (Version 1)
Quarter: 2019Q2

REPORT INFORMATION
  Report Type: Spontaneous
  Country: NL (occurrence: NL)
  Receive Date: 20190402
  Receipt Date: 20190402
  Transmission Date: 20190711
  Serious: Yes (Life-Threatening)
  Sender: FDA-Public Use
  Company Number: NL-ACCORD-117665

PATIENT
  Sex: Female

DRUGS (7)
  1. TICAGRELOR. [Concomitant]
     Active Substance: TICAGRELOR
     Dosage: 1 DD 1,STRENGTH:90MG
  2. ACETYLSALICYLIC ACID [Concomitant]
     Active Substance: ASPIRIN
     Dosage: 1 DD 1,STRENGTH:80MG
  3. METOPROLOL. [Concomitant]
     Active Substance: METOPROLOL
     Dosage: 1 DD 1,STRENGTH:25 MG
  4. PERINDOPRIL/PERINDOPRIL ERBUMINE [Concomitant]
     Dosage: 1 DD 1,STRENGTH:2 MG
  5. DICLOFENAC [Concomitant]
     Active Substance: DICLOFENAC
     Dosage: 1 DD 1 IF NECESSARY,STRENGTH:25MG
  6. ROSUVASTATIN. [Suspect]
     Active Substance: ROSUVASTATIN
     Indication: MYOCARDIAL INFARCTION
     Dosage: STRENGTH: 5 MG,1 TIME DAILY 1 PIECE
     Dates: start: 20180608, end: 20190101
  7. PANTOPRAZOLE [Concomitant]
     Active Substance: PANTOPRAZOLE
     Dosage: 1 DD 1,STRENGTH:20 MG

REACTIONS (2)
  - Disturbance in attention [Recovering/Resolving]
  - Memory impairment [Recovering/Resolving]
